FAERS Safety Report 24179995 (Version 2)
Quarter: 2024Q3

REPORT INFORMATION
  Report Type: Spontaneous
  Country: US (occurrence: US)
  Receive Date: 20240806
  Receipt Date: 20240815
  Transmission Date: 20241017
  Serious: Yes (Death, Life-Threatening, Other)
  Sender: FRESENIUS KABI
  Company Number: US-FreseniusKabi-FK202411951

PATIENT

DRUGS (1)
  1. FENTANYL [Suspect]
     Active Substance: FENTANYL\FENTANYL CITRATE
     Indication: Product used for unknown indication
     Dosage: FENTANYL 2500MCG/50ML INFUSING AT 75 MCG/HR VIA PUMP
     Dates: start: 20240727

REACTIONS (3)
  - Death [Fatal]
  - Bradycardia [Unknown]
  - Accidental overdose [Unknown]

NARRATIVE: CASE EVENT DATE: 20240727
